FAERS Safety Report 21623258 (Version 2)
Quarter: 2022Q4

REPORT INFORMATION
  Report Type: Report from Study
  Country: AR (occurrence: None)
  Receive Date: 20221121
  Receipt Date: 20221124
  Transmission Date: 20230113
  Serious: Yes (Other)
  Sender: FDA-Public Use
  Company Number: AR-ROCHE-3172904

PATIENT
  Age: 78 Year
  Sex: Male
  Weight: 78 kg

DRUGS (16)
  1. TIRAGOLUMAB [Suspect]
     Active Substance: TIRAGOLUMAB
     Indication: Non-small cell lung cancer
     Dosage: DOSE LAST STUDY DRUG ADMIN PRIOR AE/SAE: 840 MG?START DATE OF MOST RECENT DOSE OF STUDY DRUG PRIOR T
     Route: 042
     Dates: start: 20220823
  2. ATEZOLIZUMAB [Suspect]
     Active Substance: ATEZOLIZUMAB
     Indication: Non-small cell lung cancer
     Dosage: DOSE LAST STUDY DRUG ADMIN PRIOR AE/SAE: 1680 MG?START DATE OF MOST RECENT DOSE OF STUDY DRUG PRIOR
     Route: 041
     Dates: start: 20220823
  3. OMEPRAZOLE [Concomitant]
     Active Substance: OMEPRAZOLE
     Indication: Gastrointestinal disorder prophylaxis
     Route: 048
     Dates: start: 2002
  4. ROSUVASTATIN [Concomitant]
     Active Substance: ROSUVASTATIN
     Indication: Dyslipidaemia
     Route: 048
     Dates: start: 2007
  5. CARBISET [Concomitant]
     Indication: Atrial fibrillation
     Route: 048
     Dates: start: 2009
  6. APIXABAN [Concomitant]
     Active Substance: APIXABAN
     Indication: Atrial fibrillation
     Route: 048
     Dates: start: 2017
  7. ALBUTEROL [Concomitant]
     Active Substance: ALBUTEROL
     Indication: Dyspnoea
     Route: 048
     Dates: start: 20220831
  8. METFORMIN [Concomitant]
     Active Substance: METFORMIN HYDROCHLORIDE
     Indication: Dyspnoea
     Route: 048
     Dates: start: 20220923, end: 20221012
  9. RANITIDINE [Concomitant]
     Active Substance: RANITIDINE
     Route: 042
     Dates: start: 20220923, end: 20220930
  10. BISOPROLOL [Concomitant]
     Active Substance: BISOPROLOL
     Indication: Dyspnoea
     Route: 042
     Dates: start: 20220831, end: 20220907
  11. BISOPROLOL [Concomitant]
     Active Substance: BISOPROLOL
     Route: 048
     Dates: start: 20220923, end: 20220930
  12. ALBUTEROL [Concomitant]
     Active Substance: ALBUTEROL
     Indication: Dyspnoea
     Route: 048
     Dates: start: 20220831
  13. INSULIN NOS [Concomitant]
     Active Substance: INSULIN NOS
     Indication: Hyperglycaemia
     Route: 042
     Dates: start: 20220926, end: 20220930
  14. LOSARTAN [Concomitant]
     Active Substance: LOSARTAN
     Indication: Dyspnoea
     Route: 042
     Dates: start: 20220831, end: 20220907
  15. AMLODIPINE [Concomitant]
     Active Substance: AMLODIPINE BESYLATE
     Indication: Dyspnoea
     Route: 042
     Dates: start: 20220831, end: 20220907
  16. DUTASTERIDE [Concomitant]
     Active Substance: DUTASTERIDE
     Indication: Dyspnoea
     Route: 042
     Dates: start: 20220831, end: 20220907

REACTIONS (1)
  - Pneumonia [Recovered/Resolved]

NARRATIVE: CASE EVENT DATE: 20220831
